FAERS Safety Report 4979727-9 (Version None)
Quarter: 2006Q2

REPORT INFORMATION
  Report Type: 
  Country: None (occurrence: None)
  Receive Date: 20060418
  Receipt Date: 20060407
  Transmission Date: 20061013
  Serious: Yes (Hospitalization)
  Sender: FDA-Public Use
  Company Number: 2006048895

PATIENT
  Age: 61 Year
  Sex: Female

DRUGS (6)
  1. SERTRALINE [Suspect]
     Indication: DEPRESSION
     Dosage: 150 MG (50 MG, 3 IN 1 D, ORAL
     Route: 048
     Dates: start: 20060101, end: 20060213
  2. IRFEN (IBUPROFEN) [Suspect]
     Indication: NECK PAIN
     Dosage: 1800 MG (600 MG, 3 IN 1 D), ORAL
     Route: 048
     Dates: start: 20060206, end: 20060207
  3. TIZANIDINE HCL [Concomitant]
  4. ASPIRIN [Concomitant]
  5. BLOPRESS (CANDESARTAN CILEXETIL) [Concomitant]
  6. NORVASC [Concomitant]

REACTIONS (21)
  - CHILLS [None]
  - COXSACKIE VIRAL INFECTION [None]
  - CYTOMEGALOVIRUS INFECTION [None]
  - DEPRESSION [None]
  - DRUG RASH WITH EOSINOPHILIA AND SYSTEMIC SYMPTOMS [None]
  - ECHO VIRUS INFECTION [None]
  - EOSINOPHILIA [None]
  - EPSTEIN-BARR VIRUS INFECTION [None]
  - ERYTHEMA [None]
  - HEPATIC TRAUMA [None]
  - HEPATITIS C VIRUS [None]
  - HIV INFECTION [None]
  - HYPERSENSITIVITY [None]
  - NECK PAIN [None]
  - OEDEMA [None]
  - PARVOVIRUS INFECTION [None]
  - PYREXIA [None]
  - RASH PAPULAR [None]
  - RASH PRURITIC [None]
  - RASH PUSTULAR [None]
  - TOXIC EPIDERMAL NECROLYSIS [None]
